FAERS Safety Report 20448683 (Version 3)
Quarter: 2022Q3

REPORT INFORMATION
  Report Type: Spontaneous
  Country: IN (occurrence: IN)
  Receive Date: 20220209
  Receipt Date: 20220928
  Transmission Date: 20221026
  Serious: Yes (Other)
  Sender: FDA-Public Use
  Company Number: IN-PFIZER INC-2021889001

PATIENT
  Age: 67 Year
  Sex: Female

DRUGS (6)
  1. AROMASIN [Suspect]
     Active Substance: EXEMESTANE
     Indication: Breast cancer metastatic
     Dosage: 25 MG, 1X/DAY
     Route: 048
     Dates: start: 20191118
  2. AROMASIN [Suspect]
     Active Substance: EXEMESTANE
     Dosage: 1 MG, 1X/DAY
  3. SHELCAL [CALCIUM CARBONATE;COLECALCIFEROL] [Concomitant]
     Dosage: 500 MG, 1X/DAY
  4. CALCIROL [COLECALCIFEROL] [Concomitant]
     Dosage: MONTHLY (ONCE A MONTH)
  5. IDROFOS [Concomitant]
     Dosage: 150 MG, MONTHLY (ONCE A MONTH)
  6. ETORICOXIB [Concomitant]
     Active Substance: ETORICOXIB
     Dosage: 90 MG, 1X/DAY (OD X 1 WEEK)

REACTIONS (3)
  - Surgery [Unknown]
  - Off label use [Unknown]
  - Pain [Not Recovered/Not Resolved]
